FAERS Safety Report 25277856 (Version 1)
Quarter: 2025Q2

REPORT INFORMATION
  Report Type: Spontaneous
  Country: US (occurrence: US)
  Receive Date: 20250507
  Receipt Date: 20250507
  Transmission Date: 20250717
  Serious: Yes (Other)
  Sender: AUROBINDO
  Company Number: US-AUROBINDO-AUR-APL-2025-023213

PATIENT
  Age: 53 Year
  Sex: Female

DRUGS (2)
  1. IMATINIB [Suspect]
     Active Substance: IMATINIB
     Indication: Gastrointestinal stromal tumour
     Route: 065
  2. PREDNISOLONE [Concomitant]
     Active Substance: PREDNISOLONE
     Indication: Gastrointestinal stromal tumour
     Dosage: 40 MILLIGRAM, ONCE A DAY
     Route: 065

REACTIONS (1)
  - Acute hepatitis B [Unknown]
